FAERS Safety Report 8355321-7 (Version None)
Quarter: 2012Q2

REPORT INFORMATION
  Report Type: 
  Country: None (occurrence: None)
  Receive Date: 20120511
  Receipt Date: 20110328
  Transmission Date: 20120825
  Serious: No
  Sender: FDA-Public Use
  Company Number: US-TEVA-2011001430

PATIENT
  Sex: Female

DRUGS (4)
  1. METOPROLOL TARTRATE [Concomitant]
     Dates: start: 20090101
  2. NUVIGIL [Suspect]
     Indication: FATIGUE
     Route: 048
     Dates: start: 20100301, end: 20100301
  3. NUVIGIL [Suspect]
  4. LOW DOSE ORAL CONTRACEPTIVE [Concomitant]

REACTIONS (1)
  - DRUG INEFFECTIVE [None]
